FAERS Safety Report 7282143-0 (Version None)
Quarter: 2011Q1

REPORT INFORMATION
  Report Type: 
  Country: None (occurrence: None)
  Receive Date: 20110208
  Receipt Date: 20110202
  Transmission Date: 20110831
  Serious: Yes (Other)
  Sender: FDA-Public Use
  Company Number: DE-PFIZER INC-2011024578

PATIENT
  Age: 44 Year
  Sex: Female

DRUGS (1)
  1. CHAMPIX [Suspect]
     Dosage: UNK
     Dates: start: 20101217, end: 20110115

REACTIONS (6)
  - BLOOD URINE PRESENT [None]
  - FATIGUE [None]
  - SLEEP DISORDER [None]
  - THINKING ABNORMAL [None]
  - PAIN [None]
  - ABNORMAL DREAMS [None]
